FAERS Safety Report 19980672 (Version 16)
Quarter: 2022Q4

REPORT INFORMATION
  Report Type: Spontaneous
  Country: US (occurrence: US)
  Receive Date: 20211021
  Receipt Date: 20221129
  Transmission Date: 20230112
  Serious: Yes (Other)
  Sender: FDA-Public Use
  Company Number: US-BIOVITRUM-2021US4488

PATIENT
  Sex: Female

DRUGS (31)
  1. KINERET [Suspect]
     Active Substance: ANAKINRA
     Indication: Rheumatoid arthritis
     Dates: start: 20210505
  2. KINERET [Suspect]
     Active Substance: ANAKINRA
     Dates: start: 20220111
  3. KINERET [Suspect]
     Active Substance: ANAKINRA
     Dates: start: 20220111
  4. KINERET [Suspect]
     Active Substance: ANAKINRA
     Dosage: 100MG/0.67ML, DAILY
     Dates: start: 20220111
  5. KINERET [Suspect]
     Active Substance: ANAKINRA
     Dates: start: 20220111
  6. KINERET [Suspect]
     Active Substance: ANAKINRA
     Dates: start: 202201
  7. METHOTREXATE [Concomitant]
     Active Substance: METHOTREXATE
  8. B-VITAMINS [Concomitant]
  9. FUROSEMIDE [Concomitant]
     Active Substance: FUROSEMIDE
  10. ONDANSETRON [Concomitant]
     Active Substance: ONDANSETRON
  11. LOSARTAN [Concomitant]
     Active Substance: LOSARTAN
  12. SUMATRIPTAN [Concomitant]
     Active Substance: SUMATRIPTAN
  13. VALACYCLOVIR [Concomitant]
     Active Substance: VALACYCLOVIR HYDROCHLORIDE
  14. POTASSIUM [Concomitant]
     Active Substance: POTASSIUM
  15. ZINC [Concomitant]
     Active Substance: ZINC
  16. MAGNESIUM [Concomitant]
     Active Substance: MAGNESIUM
  17. VITAMIN C [Concomitant]
     Active Substance: ASCORBIC ACID
  18. VITAMINS [Concomitant]
     Active Substance: VITAMINS
  19. ACTHAR [Suspect]
     Active Substance: CORTICOTROPIN
     Indication: Product used for unknown indication
  20. RANITIDINE [Concomitant]
     Active Substance: RANITIDINE
  21. AMITRIPTYLINE [Concomitant]
     Active Substance: AMITRIPTYLINE
  22. SYNTHROID [Concomitant]
     Active Substance: LEVOTHYROXINE SODIUM
  23. ALPRAZOLAM [Concomitant]
     Active Substance: ALPRAZOLAM
  24. CYCLOBENZAPRINE [Concomitant]
     Active Substance: CYCLOBENZAPRINE
  25. PREDNISONE [Concomitant]
     Active Substance: PREDNISONE
  26. OXYCODONE [Concomitant]
     Active Substance: OXYCODONE
  27. CREON [Concomitant]
     Active Substance: PANCRELIPASE AMYLASE\PANCRELIPASE LIPASE\PANCRELIPASE PROTEASE
  28. TOPROL XL [Concomitant]
     Active Substance: METOPROLOL SUCCINATE
  29. ASPIRIN [Concomitant]
     Active Substance: ASPIRIN
  30. LORATADINE [Concomitant]
     Active Substance: LORATADINE
  31. TRAZODONE [Concomitant]
     Active Substance: TRAZODONE HYDROCHLORIDE

REACTIONS (46)
  - Peripheral artery stenosis [Unknown]
  - Rheumatoid arthritis [Unknown]
  - Neuropathy peripheral [Unknown]
  - Aortic arteriosclerosis [Unknown]
  - Osteomyelitis [Unknown]
  - Raynaud^s phenomenon [Unknown]
  - Condition aggravated [Unknown]
  - Foot deformity [Unknown]
  - Pain [Unknown]
  - Erythema [Unknown]
  - Feeling hot [Unknown]
  - Gait disturbance [Unknown]
  - Arthrodesis [Unknown]
  - Tachycardia [Unknown]
  - Hand deformity [Unknown]
  - Gait disturbance [Unknown]
  - Skin ulcer [Unknown]
  - Head injury [Unknown]
  - Adverse drug reaction [Unknown]
  - Malaise [Recovering/Resolving]
  - Anxiety [Recovering/Resolving]
  - Peripheral swelling [Unknown]
  - Pityriasis rosea [Recovered/Resolved]
  - Urinary tract infection [Unknown]
  - Fatigue [Unknown]
  - Renal cyst [Unknown]
  - Lymphoedema [Unknown]
  - Blister [Unknown]
  - Exostosis [Unknown]
  - Fall [Unknown]
  - Hypoaesthesia [Unknown]
  - Injection site pain [Unknown]
  - Injection site rash [Unknown]
  - Injection site swelling [Recovered/Resolved]
  - Injection site erythema [Recovered/Resolved]
  - Injection site urticaria [Unknown]
  - Injection site pruritus [Unknown]
  - Injection site discolouration [Unknown]
  - Injection site vesicles [Unknown]
  - Injection site bruising [Unknown]
  - Injection site haemorrhage [Unknown]
  - Injection site mass [Unknown]
  - Injection site discharge [Unknown]
  - Drug interaction [Unknown]
  - Drug ineffective [Unknown]
  - Product dose omission issue [Unknown]
